FAERS Safety Report 26047619 (Version 1)
Quarter: 2025Q4

REPORT INFORMATION
  Report Type: Report from Study
  Country: US (occurrence: US)
  Receive Date: 20251114
  Receipt Date: 20251114
  Transmission Date: 20260117
  Serious: Yes (Other)
  Sender: MYLAN
  Company Number: US-MYLANLABS-2025M1096778

PATIENT
  Age: 49 Year
  Sex: Male

DRUGS (16)
  1. METHOTREXATE [Suspect]
     Active Substance: METHOTREXATE
     Indication: Anti-neutrophil cytoplasmic antibody positive vasculitis
     Dosage: FOR MORE THAN 3 YEARS
  2. METHOTREXATE [Suspect]
     Active Substance: METHOTREXATE
     Indication: Inflammatory bowel disease
  3. METHOTREXATE [Suspect]
     Active Substance: METHOTREXATE
     Indication: Lymphocytosis
  4. METHOTREXATE [Suspect]
     Active Substance: METHOTREXATE
     Indication: Natural killer cell count increased
  5. RITUXIMAB [Suspect]
     Active Substance: RITUXIMAB
     Indication: Anti-neutrophil cytoplasmic antibody positive vasculitis
     Dosage: 1000 MILLIGRAM, INITIAL TWO DOSES SEPARATED BY 2 TO 4 WEEKS,  INTRAVENOUS INFUSION
  6. RITUXIMAB [Suspect]
     Active Substance: RITUXIMAB
     Indication: Inflammatory bowel disease
     Dosage: 1000 MILLIGRAM, EVERY 4 TO 6 MONTHS, INTRAVENOUS INFUSION
  7. RITUXIMAB [Suspect]
     Active Substance: RITUXIMAB
     Indication: Lymphocytosis
  8. RITUXIMAB [Suspect]
     Active Substance: RITUXIMAB
     Indication: Natural killer cell count increased
  9. AZATHIOPRINE [Suspect]
     Active Substance: AZATHIOPRINE
     Indication: Anti-neutrophil cytoplasmic antibody positive vasculitis
     Dosage: FOR NEARLY 6 MONTHS
  10. AZATHIOPRINE [Suspect]
     Active Substance: AZATHIOPRINE
     Indication: Inflammatory bowel disease
  11. AZATHIOPRINE [Suspect]
     Active Substance: AZATHIOPRINE
     Indication: Lymphocytosis
  12. AZATHIOPRINE [Suspect]
     Active Substance: AZATHIOPRINE
     Indication: Natural killer cell count increased
  13. CYCLOPHOSPHAMIDE [Suspect]
     Active Substance: CYCLOPHOSPHAMIDE
     Indication: Anti-neutrophil cytoplasmic antibody positive vasculitis
     Dosage: ONE CYCLE, CYCLE
  14. CYCLOPHOSPHAMIDE [Suspect]
     Active Substance: CYCLOPHOSPHAMIDE
     Indication: Inflammatory bowel disease
  15. CYCLOPHOSPHAMIDE [Suspect]
     Active Substance: CYCLOPHOSPHAMIDE
     Indication: Lymphocytosis
  16. CYCLOPHOSPHAMIDE [Suspect]
     Active Substance: CYCLOPHOSPHAMIDE
     Indication: Natural killer cell count increased

REACTIONS (2)
  - B-lymphocyte count decreased [Recovering/Resolving]
  - Product use in unapproved indication [Recovering/Resolving]
